FAERS Safety Report 9767446 (Version 3)
Quarter: 2013Q4

REPORT INFORMATION
  Report Type: Spontaneous
  Country: CH (occurrence: CH)
  Receive Date: 20131217
  Receipt Date: 20131226
  Transmission Date: 20140711
  Serious: Yes (Other)
  Sender: FDA-Public Use
  Company Number: PHHY2013CH145939

PATIENT
  Sex: Female

DRUGS (1)
  1. GILENYA [Suspect]
     Indication: MULTIPLE SCLEROSIS
     Dosage: 0.5 MG, DAILY
     Route: 048
     Dates: start: 20130619

REACTIONS (5)
  - Malignant melanoma [Unknown]
  - CSF protein increased [Unknown]
  - Antinuclear antibody positive [Unknown]
  - Dyspnoea exertional [Recovering/Resolving]
  - Leukopenia [Recovering/Resolving]
